FAERS Safety Report 11392321 (Version 1)
Quarter: 2015Q3

REPORT INFORMATION
  Report Type: Spontaneous
  Country: PT (occurrence: None)
  Receive Date: 20150814
  Receipt Date: 20150814
  Transmission Date: 20151125
  Serious: Yes (Hospitalization)
  Sender: FDA-Public Use
  Company Number: 2015R1-101156

PATIENT
  Age: 40 Year
  Sex: Female

DRUGS (2)
  1. PROPANOLOL (PROPANOLOL) UNKNOWN [Concomitant]
  2. METHIMAZOLE (THIAMAZOLE) UNKNOWN [Suspect]
     Active Substance: METHIMAZOLE
     Indication: PRODUCT USED FOR UNKNOWN INDICATION

REACTIONS (4)
  - Agranulocytosis [None]
  - Pharyngeal erythema [None]
  - Odynophagia [None]
  - Pyrexia [None]
